FAERS Safety Report 21994598 (Version 1)
Quarter: 2023Q1

REPORT INFORMATION
  Report Type: Spontaneous
  Country: US (occurrence: None)
  Receive Date: 20230214
  Receipt Date: 20230214
  Transmission Date: 20230417
  Serious: No
  Sender: FDA-Public Use
  Company Number: None

PATIENT
  Age: 69 Year
  Sex: Female

DRUGS (1)
  1. AMBRISENTAN [Suspect]
     Active Substance: AMBRISENTAN
     Indication: Pulmonary arterial hypertension
     Dosage: FREQUENCY : DAILY;?
     Route: 048

REACTIONS (7)
  - Respiratory distress [None]
  - Cardiac disorder [None]
  - Musculoskeletal chest pain [None]
  - Road traffic accident [None]
  - Urinary incontinence [None]
  - Anal incontinence [None]
  - Swelling [None]

NARRATIVE: CASE EVENT DATE: 20230214
